FAERS Safety Report 13379759 (Version 7)
Quarter: 2017Q4

REPORT INFORMATION
  Report Type: Spontaneous
  Country: US (occurrence: US)
  Receive Date: 20170328
  Receipt Date: 20171020
  Transmission Date: 20180320
  Serious: Yes (Disabling, Other)
  Sender: FDA-Public Use
  Company Number: US-009507513-1703USA011154

PATIENT
  Sex: Female
  Weight: 53.97 kg

DRUGS (5)
  1. FOSAMAX [Suspect]
     Active Substance: ALENDRONATE SODIUM
     Indication: HIP FRACTURE
  2. ALENDRONATE SODIUM. [Suspect]
     Active Substance: ALENDRONATE SODIUM
     Dosage: 70 MG, QW
     Route: 048
     Dates: start: 20080305, end: 200905
  3. PROLIA [Suspect]
     Active Substance: DENOSUMAB
     Indication: PRODUCT USED FOR UNKNOWN INDICATION
     Dosage: UNK, UNKNOWN
     Route: 065
     Dates: end: 201410
  4. FOSAMAX [Suspect]
     Active Substance: ALENDRONATE SODIUM
     Indication: OSTEOPENIA
  5. FOSAMAX [Suspect]
     Active Substance: ALENDRONATE SODIUM
     Indication: OSTEOPOROSIS
     Dosage: 70 MG, QW
     Route: 048
     Dates: start: 200205, end: 200803

REACTIONS (36)
  - Anxiety [Not Recovered/Not Resolved]
  - Nodal osteoarthritis [Unknown]
  - Fat necrosis [Unknown]
  - Bone loss [Unknown]
  - Dental fistula [Unknown]
  - Vascular stent restenosis [Not Recovered/Not Resolved]
  - Fall [Unknown]
  - Dental plaque [Unknown]
  - Arthritis [Unknown]
  - Trigger finger [Not Recovered/Not Resolved]
  - Mitral valve prolapse [Unknown]
  - Face injury [Not Recovered/Not Resolved]
  - Osteonecrosis of jaw [Not Recovered/Not Resolved]
  - Increased tendency to bruise [Unknown]
  - Osteoarthritis [Unknown]
  - Spinal osteoarthritis [Unknown]
  - Osteoarthritis [Not Recovered/Not Resolved]
  - Back pain [Unknown]
  - Periodontal disease [Unknown]
  - Cataract [Unknown]
  - Tooth extraction [Unknown]
  - Muscle disorder [Unknown]
  - Granuloma [Unknown]
  - Oral disorder [Unknown]
  - Tooth disorder [Unknown]
  - Dental alveolar anomaly [Unknown]
  - Depression [Not Recovered/Not Resolved]
  - Cardiovascular disorder [Unknown]
  - Femur fracture [Unknown]
  - Viral infection [Unknown]
  - Soft tissue neoplasm [Unknown]
  - Nephrolithiasis [Unknown]
  - Cortisol increased [Unknown]
  - Upper limb fracture [Unknown]
  - Trigger finger [Unknown]
  - Calcium deficiency [Unknown]

NARRATIVE: CASE EVENT DATE: 200210
